FAERS Safety Report 7148545-8 (Version None)
Quarter: 2010Q4

REPORT INFORMATION
  Report Type: 
  Country: None (occurrence: None)
  Receive Date: 20101209
  Receipt Date: 20101201
  Transmission Date: 20110411
  Serious: Yes (Death, Hospitalization, Other)
  Sender: FDA-Public Use
  Company Number: NL-GENZYME-CLOF-1001319

PATIENT
  Sex: Female
  Weight: 58 kg

DRUGS (7)
  1. EVOLTRA [Suspect]
     Indication: ACUTE MYELOID LEUKAEMIA
     Dosage: 24 MG, UNK
     Route: 042
     Dates: start: 20101012, end: 20101018
  2. CYTARABINE [Suspect]
     Indication: ACUTE MYELOID LEUKAEMIA
     Dosage: 1600 MG, UNK
     Route: 042
     Dates: start: 20101012, end: 20101018
  3. AMSACRINE [Suspect]
     Indication: ACUTE MYELOID LEUKAEMIA
     Dosage: 195 MG, UNK
     Route: 042
     Dates: start: 20101012, end: 20101018
  4. IMIPENEM [Concomitant]
     Indication: CAECITIS
     Dosage: 500 MG, TID
     Route: 042
     Dates: start: 20101020, end: 20101112
  5. CIPROXIN [Concomitant]
     Indication: PROPHYLAXIS
     Dosage: 500 MG, BID
     Route: 042
     Dates: start: 20101012, end: 20101113
  6. FLUCONAZOLE [Concomitant]
     Indication: PROPHYLAXIS
     Dosage: 400 MG, BID
     Route: 042
     Dates: start: 20101012, end: 20101113
  7. COLISTIN SULFATE [Concomitant]
     Indication: PROPHYLAXIS
     Dosage: 200 MG, UNK
     Route: 042
     Dates: start: 20101012, end: 20101113

REACTIONS (4)
  - CAECITIS [None]
  - GASTROINTESTINAL NECROSIS [None]
  - MULTI-ORGAN FAILURE [None]
  - RENAL FAILURE [None]
